FAERS Safety Report 4902566-1 (Version None)
Quarter: 2006Q1

REPORT INFORMATION
  Report Type: 
  Country: None (occurrence: None)
  Receive Date: 20060202
  Receipt Date: 20060122
  Transmission Date: 20060701
  Serious: Yes (Other)
  Sender: FDA-Public Use
  Company Number: 2006011755

PATIENT
  Age: 70 Year
  Sex: Male

DRUGS (6)
  1. SULPERAZON (SULBACTAM, CEFOPERAZONE) [Suspect]
     Indication: LOWER RESPIRATORY TRACT INFECTION
     Dosage: 3 GRAM (1.5 GRAM, 2 IN 1 D), INTRAVENOUS
     Route: 042
     Dates: start: 20060117, end: 20060121
  2. TRENTAL ^BORG^ (PENTOXIFYLLINE) [Concomitant]
  3. NOOTROPIL (PIRACETAM) [Concomitant]
  4. CONTROLOC (PANTOPRAZOLE) [Concomitant]
  5. CORDARONE [Concomitant]
  6. LANOXIN [Concomitant]

REACTIONS (1)
  - INTERNATIONAL NORMALISED RATIO INCREASED [None]
